FAERS Safety Report 17831743 (Version 1)
Quarter: 2020Q2

REPORT INFORMATION
  Report Type: Spontaneous
  Country: US (occurrence: US)
  Receive Date: 20200527
  Receipt Date: 20200527
  Transmission Date: 20200714
  Serious: No
  Sender: FDA-Public Use
  Company Number: US-GILEAD-2020-0467779

PATIENT
  Sex: Male

DRUGS (4)
  1. VEMLIDY [Suspect]
     Active Substance: TENOFOVIR ALAFENAMIDE FUMARATE
     Indication: HEPATITIS C
     Dosage: 1 DOSAGE FORM, QD
     Route: 048
     Dates: start: 202005
  2. ZYRTEC [Concomitant]
     Active Substance: CETIRIZINE HYDROCHLORIDE
  3. MELATONIN [Concomitant]
     Active Substance: MELATONIN
  4. DIPHENOXYLATE [Concomitant]
     Active Substance: DIPHENOXYLATE

REACTIONS (6)
  - Anxiety [Unknown]
  - Asthenia [Unknown]
  - Diarrhoea [Unknown]
  - Dyspepsia [Unknown]
  - Body temperature fluctuation [Unknown]
  - Vomiting [Unknown]
